FAERS Safety Report 6538526-7 (Version None)
Quarter: 2010Q1

REPORT INFORMATION
  Report Type: 
  Country: None (occurrence: None)
  Receive Date: 20100113
  Receipt Date: 20100113
  Transmission Date: 20100710
  Serious: Yes (Hospitalization)
  Sender: FDA-Public Use
  Company Number: None

PATIENT
  Sex: Male
  Weight: 72.7 kg

DRUGS (12)
  1. BEVACIZUMAB Q21 DAYS IV GENENTECH [Suspect]
     Indication: OESOPHAGEAL ADENOCARCINOMA
     Dosage: BEVACIZUMAB Q21 DAYS IV
     Route: 042
     Dates: start: 20090306, end: 20091203
  2. OXALIPLATIN Q21 DAYS IV SANOFI-AVENTIS [Suspect]
     Indication: OESOPHAGEAL ADENOCARCINOMA
     Dosage: OXALIPLATIN Q21 DAYS IV
     Route: 042
     Dates: start: 20090306, end: 20091203
  3. OXYCODONE-ACETAMINOPHEN (ROXICET) [Concomitant]
  4. BARLEY GRASS [Concomitant]
  5. MULTIPLE VITAMIN (MULTIVITAMIN [Concomitant]
  6. CHOLECALCIFEROL (VITAMIN D) [Concomitant]
  7. SELENIUM [Concomitant]
  8. CORAL CALCIUM [Concomitant]
  9. LOPERAMIDE HCL (IMODIUM A-D [Concomitant]
  10. ADVIL LIQUI-GELS [Concomitant]
  11. PROCHLORPERAZINE MALEATE (COMPAZINE [Concomitant]
  12. DEXAMETHASONE [Concomitant]

REACTIONS (7)
  - CHEST DISCOMFORT [None]
  - DEHYDRATION [None]
  - DISEASE PROGRESSION [None]
  - OESOPHAGEAL STENOSIS [None]
  - THERAPEUTIC AGENT TOXICITY [None]
  - TREATMENT FAILURE [None]
  - WEIGHT DECREASED [None]
